FAERS Safety Report 5940302-0 (Version None)
Quarter: 2008Q4

REPORT INFORMATION
  Report Type: 
  Country: None (occurrence: None)
  Receive Date: 20081104
  Receipt Date: 20081031
  Transmission Date: 20090506
  Serious: Yes (Other)
  Sender: FDA-Public Use
  Company Number: A0754421A

PATIENT
  Age: 52 Year
  Sex: Male

DRUGS (8)
  1. ADVAIR DISKUS 100/50 [Suspect]
     Indication: ASTHMA
     Route: 055
     Dates: start: 20040101, end: 20080101
  2. WELLBUTRIN [Suspect]
     Indication: DRUG USE FOR UNKNOWN INDICATION
     Route: 048
     Dates: start: 20080401
  3. WELLBUTRIN XL [Suspect]
     Indication: DRUG USE FOR UNKNOWN INDICATION
     Route: 065
  4. CLARINEX [Concomitant]
  5. SINGULAIR [Concomitant]
  6. STRATTERA [Concomitant]
  7. WELLBUTRIN [Concomitant]
  8. ALBUTEROL [Concomitant]

REACTIONS (4)
  - ASTHMA [None]
  - COUGH [None]
  - MOOD SWINGS [None]
  - THERAPEUTIC RESPONSE UNEXPECTED [None]
